FAERS Safety Report 9287055 (Version 2)
Quarter: 2013Q2

REPORT INFORMATION
  Report Type: Other
  Country: US (occurrence: US)
  Receive Date: 20130513
  Receipt Date: 20130620
  Transmission Date: 20140414
  Serious: Yes (Death, Hospitalization)
  Sender: FDA-Public Use
  Company Number: US-SHIRE-ALL1-2013-02959

PATIENT
  Age: 69 Year
  Sex: Female
  Weight: 54 kg

DRUGS (2)
  1. FOSRENOL [Suspect]
     Indication: HYPERPHOSPHATAEMIA
     Dosage: 1000 MG, 3X/DAY:TID (1000 MG WITH MEALS)
     Route: 048
     Dates: start: 201110
  2. FOSRENOL [Suspect]
     Indication: RENAL FAILURE CHRONIC
     Dosage: 500 MG, 3X/DAY:TID (500 MG WITH SNACKS)
     Route: 048
     Dates: start: 201110

REACTIONS (6)
  - Death [Fatal]
  - Dialysis related complication [Recovered/Resolved]
  - Anaemia [Unknown]
  - Cardiovascular disorder [Unknown]
  - Arthritis [Unknown]
  - Cellulitis [Unknown]
